FAERS Safety Report 16589700 (Version 1)
Quarter: 2019Q3

REPORT INFORMATION
  Report Type: Other
  Country: US (occurrence: US)
  Receive Date: 20190718
  Receipt Date: 20190718
  Transmission Date: 20191004
  Serious: No
  Sender: FDA-Public Use
  Company Number: US-SWEDISH ORPHAN BIOVITRUM-2019US0718

PATIENT
  Sex: Male

DRUGS (5)
  1. LISINOPRIL. [Concomitant]
     Active Substance: LISINOPRIL
  2. KINERET [Suspect]
     Active Substance: ANAKINRA
     Route: 058
  3. CARVEDILOL. [Concomitant]
     Active Substance: CARVEDILOL
  4. PROCARDIA [Concomitant]
     Active Substance: NIFEDIPINE
  5. INSULIN [Concomitant]
     Active Substance: INSULIN NOS
     Indication: DIABETES MELLITUS

REACTIONS (2)
  - Platelet count increased [Unknown]
  - Injection site pain [Unknown]
